FAERS Safety Report 16439110 (Version 1)
Quarter: 2019Q2

REPORT INFORMATION
  Report Type: Spontaneous
  Country: US (occurrence: US)
  Receive Date: 20190617
  Receipt Date: 20190617
  Transmission Date: 20190711
  Serious: Yes (Other)
  Sender: FDA-Public Use
  Company Number: US-BAYER-2019-111718

PATIENT
  Age: 25 Year
  Sex: Female

DRUGS (3)
  1. ACETYLSALICYLIC ACID (CARDIO) [Interacting]
     Active Substance: ASPIRIN
     Dosage: 325 MG
  2. ACETYLSALICYLIC ACID (CARDIO) [Suspect]
     Active Substance: ASPIRIN
     Dosage: UNK
  3. WARFARIN [Interacting]
     Active Substance: WARFARIN
     Dosage: UNK

REACTIONS (6)
  - Labelled drug-drug interaction medication error [None]
  - Fatigue [None]
  - Haematoma [None]
  - Dyspnoea [None]
  - Chromaturia [None]
  - Oliguria [None]
